FAERS Safety Report 14981032 (Version 1)
Quarter: 2018Q2

REPORT INFORMATION
  Report Type: Spontaneous
  Country: US (occurrence: US)
  Receive Date: 20180606
  Receipt Date: 20180606
  Transmission Date: 20180711
  Serious: No
  Sender: FDA-Public Use
  Company Number: US-PTC THERAPEUTICS, INC.-US-2018PTC000219

PATIENT

DRUGS (5)
  1. EMFLAZA [Suspect]
     Active Substance: DEFLAZACORT
     Dosage: 12 MG, QD
     Route: 048
     Dates: start: 201803, end: 201803
  2. EMFLAZA [Suspect]
     Active Substance: DEFLAZACORT
     Dosage: 15 MG, QD
     Route: 048
     Dates: start: 20180320, end: 201803
  3. EMFLAZA [Suspect]
     Active Substance: DEFLAZACORT
     Dosage: 9 MG, QD
     Route: 048
     Dates: start: 201804, end: 201804
  4. EMFLAZA [Suspect]
     Active Substance: DEFLAZACORT
     Indication: DUCHENNE MUSCULAR DYSTROPHY
     Dosage: 18 MG, QD
     Route: 048
     Dates: start: 20171227, end: 20180319
  5. EMFLAZA [Suspect]
     Active Substance: DEFLAZACORT
     Dosage: 24 MG, QD
     Route: 048
     Dates: start: 20171221, end: 20171226

REACTIONS (4)
  - Disease progression [Unknown]
  - Mood swings [Unknown]
  - Hyperhidrosis [Unknown]
  - Palpitations [Unknown]

NARRATIVE: CASE EVENT DATE: 201801
